FAERS Safety Report 22315780 (Version 1)
Quarter: 2023Q2

REPORT INFORMATION
  Report Type: Spontaneous
  Country: CN (occurrence: None)
  Receive Date: 20230512
  Receipt Date: 20230512
  Transmission Date: 20230722
  Serious: Yes (Hospitalization, Other)
  Sender: FDA-Public Use
  Company Number: 2023A107243

PATIENT
  Age: 23287 Day
  Sex: Female
  Weight: 60 kg

DRUGS (2)
  1. ROSUVASTATIN CALCIUM [Suspect]
     Active Substance: ROSUVASTATIN CALCIUM
     Indication: Cerebral infarction
     Route: 045
     Dates: start: 20230207, end: 20230424
  2. PROBUCOL [Concomitant]
     Active Substance: PROBUCOL
     Indication: Cerebral infarction
     Route: 045
     Dates: start: 20230207, end: 20230423

REACTIONS (2)
  - Liver injury [Recovering/Resolving]
  - Headache [Recovering/Resolving]

NARRATIVE: CASE EVENT DATE: 20230423
